FAERS Safety Report 5093722-3 (Version None)
Quarter: 2006Q3

REPORT INFORMATION
  Report Type: 
  Country: None (occurrence: None)
  Receive Date: 20060728
  Receipt Date: 20060406
  Transmission Date: 20061208
  Serious: No
  Sender: FDA-Public Use
  Company Number: 252386

PATIENT
  Age: 82 Year
  Sex: Female
  Weight: 48.1 kg

DRUGS (9)
  1. LEVEMIR [Suspect]
     Indication: DIABETES MELLITUS INSULIN-DEPENDENT
     Dosage: 11 IU, QD, SUBCUTANEOUS
     Route: 058
     Dates: start: 20051201
  2. NOVOLOG FLEXPEN (INSULIN ASPART) [Concomitant]
  3. DIOVAN [Concomitant]
  4. FOSAMAX [Concomitant]
  5. EVISTA [Concomitant]
  6. HYDROCHLOROTHIAZDE TAB [Concomitant]
  7. LYRICA [Concomitant]
  8. THYROID THERAPY [Concomitant]
  9. ASPIRIN [Concomitant]

REACTIONS (1)
  - BLOOD GLUCOSE FLUCTUATION [None]
